FAERS Safety Report 5196887-8 (Version None)
Quarter: 2006Q4

REPORT INFORMATION
  Report Type: 
  Country: None (occurrence: None)
  Receive Date: 20061227
  Receipt Date: 20061214
  Transmission Date: 20070319
  Serious: Yes (Hospitalization)
  Sender: FDA-Public Use
  Company Number: 2006145999

PATIENT
  Age: 80 Year
  Sex: Female
  Weight: 57.9 kg

DRUGS (13)
  1. SU-011,248 (SUNITINIB MALATE) [Suspect]
     Indication: GASTROINTESTINAL STROMAL TUMOUR
     Dosage: 37.5 MG (37.5 MG, 1 IN 1 D), ORAL
     Route: 048
     Dates: start: 20061026, end: 20061122
  2. DIOVAN [Concomitant]
  3. NITRO-DUR [Concomitant]
  4. PROCHLORPERAZINE MALEATE [Concomitant]
  5. LASIX [Concomitant]
  6. PANTOPRAZOLE SODIUM [Concomitant]
  7. FOLVITE (FOLIC ACID) [Concomitant]
  8. ALDACTONE [Concomitant]
  9. COLACE (DOCUSATE SODIUM) [Concomitant]
  10. GLYSENNID (SENNA LEAF) [Concomitant]
  11. K-DUR 10 [Concomitant]
  12. SYNTHROID [Concomitant]
  13. EPREX [Concomitant]

REACTIONS (7)
  - BLOOD UREA INCREASED [None]
  - GENERAL PHYSICAL HEALTH DETERIORATION [None]
  - HYPONATRAEMIA [None]
  - HYPOTHYROIDISM [None]
  - PANCYTOPENIA [None]
  - PULMONARY OEDEMA [None]
  - RHABDOMYOLYSIS [None]
